FAERS Safety Report 19415950 (Version 1)
Quarter: 2021Q2

REPORT INFORMATION
  Report Type: Spontaneous
  Country: US (occurrence: US)
  Receive Date: 20210614
  Receipt Date: 20210614
  Transmission Date: 20210717
  Serious: Yes (Disabling, Other)
  Sender: FDA-Public Use
  Company Number: None

PATIENT
  Age: 78 Year
  Sex: Female

DRUGS (2)
  1. FLONASE [Suspect]
     Active Substance: FLUTICASONE PROPIONATE
     Indication: GLAUCOMA
     Dosage: ?          OTHER DOSE:ONE?TWO DF ;?
     Route: 045
     Dates: start: 20000201, end: 20210120
  2. FLONASE [Suspect]
     Active Substance: FLUTICASONE PROPIONATE
     Indication: CATARACT
     Dosage: ?          OTHER DOSE:ONE?TWO DF ;?
     Route: 045
     Dates: start: 20000201, end: 20210120

REACTIONS (2)
  - Cataract [None]
  - Glaucoma [None]

NARRATIVE: CASE EVENT DATE: 20190902
